FAERS Safety Report 25746629 (Version 4)
Quarter: 2025Q4

REPORT INFORMATION
  Report Type: Spontaneous
  Country: US (occurrence: US)
  Receive Date: 20250901
  Receipt Date: 20251001
  Transmission Date: 20260117
  Serious: No
  Sender: LUPIN
  Company Number: US-LUPIN PHARMACEUTICALS INC.-2025-07635

PATIENT
  Age: 45 Year
  Weight: 108.39 kg

DRUGS (2)
  1. AMLODIPINE BESYLATE [Suspect]
     Active Substance: AMLODIPINE BESYLATE
     Indication: Hypertension
     Dosage: UNK, QD
     Route: 065
  2. AMLODIPINE BESYLATE [Suspect]
     Active Substance: AMLODIPINE BESYLATE
     Dosage: UNK, QD
     Route: 065

REACTIONS (6)
  - Chest discomfort [Unknown]
  - Nausea [Unknown]
  - Product lot number issue [Unknown]
  - Chest pain [Unknown]
  - Headache [Unknown]
  - Dizziness [Unknown]
